FAERS Safety Report 11619514 (Version 3)
Quarter: 2016Q4

REPORT INFORMATION
  Report Type: Spontaneous
  Country: FR (occurrence: FR)
  Receive Date: 20151012
  Receipt Date: 20161108
  Transmission Date: 20170206
  Serious: Yes (Other)
  Sender: FDA-Public Use
  Company Number: FR-BAYER-2015-290700

PATIENT
  Age: 30 Year
  Sex: Female

DRUGS (1)
  1. JAYDESS [Suspect]
     Active Substance: LEVONORGESTREL
     Dosage: 14 MCG/24HR, CONT
     Route: 015
     Dates: start: 20150107, end: 20150704

REACTIONS (6)
  - Device expulsion [None]
  - Amniotic cavity infection [None]
  - Device issue [Recovered/Resolved]
  - Premature labour [None]
  - Pregnancy with contraceptive device [None]
  - Medication error [None]

NARRATIVE: CASE EVENT DATE: 2015
